FAERS Safety Report 7861964 (Version 4)
Quarter: 2014Q1

REPORT INFORMATION
  Report Type: Spontaneous
  Country: US (occurrence: US)
  Receive Date: 20110318
  Receipt Date: 20140205
  Transmission Date: 20141002
  Serious: Yes (Hospitalization)
  Sender: FDA-Public Use
  Company Number: US-BAYER-2011-021760

PATIENT
  Age: 39 Year
  Sex: Female
  Weight: 70.3 kg

DRUGS (9)
  1. YAZ [Suspect]
     Dosage: UNK
     Dates: start: 200906, end: 201001
  2. GARLIC TABLETS [Concomitant]
     Dosage: UNK UNK, QD
     Dates: start: 200911
  3. SINGULAIR [Concomitant]
     Dosage: 10 MG, QD
     Route: 048
  4. SINGULAIR [Concomitant]
     Dosage: 10 MG, QD
     Route: 048
     Dates: start: 20100124
  5. PHENERGAN [Concomitant]
     Dosage: 25 MG, PRN
     Route: 048
     Dates: start: 20100124
  6. LORTAB [Concomitant]
     Dosage: 7.5 MG, PRN
     Route: 048
     Dates: start: 20100124
  7. MOTRIN [Concomitant]
     Dosage: 800 MG, UNK
     Route: 048
     Dates: start: 20091217
  8. LIDOCAINE [Concomitant]
     Dosage: UNK MG, UNK
     Route: 061
     Dates: start: 20091217
  9. PERCOCET [Concomitant]
     Dosage: UNK
     Dates: start: 20091217

REACTIONS (3)
  - Cholecystectomy [None]
  - Cholelithiasis [Unknown]
  - Injury [None]
